FAERS Safety Report 4340905-3 (Version None)
Quarter: 2004Q2

REPORT INFORMATION
  Report Type: 
  Country: None (occurrence: None)
  Receive Date: 20040413
  Receipt Date: 20040331
  Transmission Date: 20050107
  Serious: Yes (Hospitalization)
  Sender: FDA-Public Use
  Company Number: 2004005892

PATIENT
  Age: 58 Year
  Sex: Female
  Weight: 84 kg

DRUGS (2)
  1. ZIPRASIDONE (CAPS) (ZIPRASIDONE) [Suspect]
     Indication: BIPOLAR DISORDER
     Dosage: 120 MG (DAILY), ORAL
     Route: 048
     Dates: start: 20031110, end: 20031126
  2. ZIPRASIDONE (CAPS) (ZIPRASIDONE) [Suspect]
     Indication: PSYCHOTIC DISORDER
     Dosage: 120 MG (DAILY), ORAL
     Route: 048
     Dates: start: 20031110, end: 20031126

REACTIONS (2)
  - DYSKINESIA [None]
  - RASH MACULO-PAPULAR [None]
